FAERS Safety Report 7819571-8 (Version None)
Quarter: 2011Q4

REPORT INFORMATION
  Report Type: 
  Country: None (occurrence: None)
  Receive Date: 20111013
  Receipt Date: 20110929
  Transmission Date: 20120403
  Serious: Yes (Hospitalization)
  Sender: FDA-Public Use
  Company Number: USA/USA/11/0021495

PATIENT
  Age: 22 Year
  Sex: Male
  Weight: 57.1 kg

DRUGS (7)
  1. HQK-1001 [Suspect]
     Indication: SICKLE CELL ANAEMIA
     Dosage: 40 MG/KG, 1 D, ORAL
     Route: 048
     Dates: start: 20110711, end: 20110915
  2. FOLIC ACID [Concomitant]
  3. AUGMENTIN [Suspect]
     Indication: SEPSIS
     Dosage: 625 MG, 2 IN 1 D, ORAL
     Route: 048
     Dates: start: 20110905, end: 20110915
  4. CODEINE SULFATE [Concomitant]
  5. AUGMENTIN [Suspect]
     Indication: SEPSIS
     Dosage: 1.2 MG, INTRAVENOUS
     Route: 042
     Dates: start: 20110905, end: 20110905
  6. VOLTAREN [Suspect]
     Indication: PRODUCT USED FOR UNKNOWN INDICATION
     Dates: start: 20110905
  7. FERROUS SULFATE TAB [Suspect]
     Indication: PRODUCT USED FOR UNKNOWN INDICATION
     Dates: start: 20110711

REACTIONS (14)
  - LOWER RESPIRATORY TRACT INFECTION [None]
  - OROPHARYNGEAL PAIN [None]
  - CHILLS [None]
  - HAEMOGLOBIN DECREASED [None]
  - URINARY TRACT INFECTION [None]
  - PYREXIA [None]
  - HEADACHE [None]
  - NAUSEA [None]
  - VOMITING [None]
  - VIRAL INFECTION [None]
  - BONE PAIN [None]
  - OXYGEN SATURATION DECREASED [None]
  - RESPIRATORY RATE INCREASED [None]
  - SKIN ULCER [None]
